FAERS Safety Report 4299468-3 (Version None)
Quarter: 2004Q1

REPORT INFORMATION
  Report Type: 
  Country: None (occurrence: None)
  Receive Date: 20040219
  Receipt Date: 20040213
  Transmission Date: 20041129
  Serious: Yes (Hospitalization)
  Sender: FDA-Public Use
  Company Number: US-GLAXOSMITHKLINE-A0498080A

PATIENT
  Age: 66 Year
  Sex: Female

DRUGS (6)
  1. MELPHALAN [Suspect]
     Indication: MULTIPLE MYELOMA
     Dosage: 330MG PER DAY
     Route: 042
     Dates: start: 20031030, end: 20031030
  2. THALIDOMIDE [Suspect]
     Indication: MULTIPLE MYELOMA
     Dosage: 400MG PER DAY
     Route: 048
     Dates: start: 20030411, end: 20030508
  3. ZYRTEC [Concomitant]
     Dosage: 10MG PER DAY
  4. REGLAN [Concomitant]
  5. ACYCLOVIR [Concomitant]
     Dosage: 400MG PER DAY
  6. IMODIUM [Concomitant]

REACTIONS (13)
  - ASTHENIA [None]
  - C-REACTIVE PROTEIN INCREASED [None]
  - CONFUSIONAL STATE [None]
  - HYPERGLYCAEMIA [None]
  - LUNG INFILTRATION [None]
  - MUCOSAL INFLAMMATION [None]
  - OEDEMA [None]
  - PAIN [None]
  - PLEURAL EFFUSION [None]
  - PYREXIA [None]
  - RENAL IMPAIRMENT [None]
  - RESPIRATORY DISORDER [None]
  - RESPIRATORY FAILURE [None]
